FAERS Safety Report 10677339 (Version 3)
Quarter: 2015Q2

REPORT INFORMATION
  Report Type: Spontaneous
  Country: SE (occurrence: SE)
  Receive Date: 20141226
  Receipt Date: 20150423
  Transmission Date: 20150821
  Serious: Yes (Other)
  Sender: FDA-Public Use
  Company Number: CHPA2014SE015880

PATIENT
  Age: 30 Year
  Sex: Female

DRUGS (2)
  1. NICOTINELL PLACEBO GUM [Suspect]
     Active Substance: NICOTINE
     Indication: PRODUCT USED FOR UNKNOWN INDICATION
     Route: 065
  2. NICOTINELL [Suspect]
     Active Substance: NICOTINE
     Indication: SMOKING CESSATION THERAPY
     Dosage: 10-15 DF, QD
     Route: 065
     Dates: start: 199808, end: 201405

REACTIONS (3)
  - Maternal exposure during pregnancy [Unknown]
  - Drug dependence [Recovering/Resolving]
  - Incorrect drug administration duration [Unknown]

NARRATIVE: CASE EVENT DATE: 200910
